FAERS Safety Report 10348132 (Version 1)
Quarter: 2014Q3

REPORT INFORMATION
  Report Type: Spontaneous
  Country: US (occurrence: None)
  Receive Date: 20140723
  Receipt Date: 20140723
  Transmission Date: 20150326
  Serious: Yes (Hospitalization)
  Sender: FDA-Public Use
  Company Number: 2014NUEUSA00356

PATIENT
  Age: 58 Year
  Sex: Female

DRUGS (5)
  1. NUEDEXTA [Suspect]
     Active Substance: DEXTROMETHORPHAN HYDROBROMIDE\QUINIDINE SULFATE
     Indication: AFFECT LABILITY
     Dates: start: 2013, end: 2013
  2. VALIUM [Concomitant]
     Active Substance: DIAZEPAM
  3. DEPAKOTE [Concomitant]
     Active Substance: DIVALPROEX SODIUM
  4. VITAMIN D (COLECALCIFEROL) [Concomitant]
  5. LACTULOSE (LACTULOSE) [Concomitant]
     Active Substance: LACTULOSE

REACTIONS (1)
  - Convulsion [None]

NARRATIVE: CASE EVENT DATE: 201306
